FAERS Safety Report 5809582-6 (Version None)
Quarter: 2008Q3

REPORT INFORMATION
  Report Type: 
  Country: None (occurrence: None)
  Receive Date: 20080709
  Receipt Date: 20080623
  Transmission Date: 20090109
  Serious: Yes (Hospitalization)
  Sender: FDA-Public Use
  Company Number: 2008012047

PATIENT
  Age: 29 Year
  Sex: Male

DRUGS (1)
  1. MINOXIDIL [Suspect]
     Indication: ANDROGENETIC ALOPECIA
     Dosage: UNSPECIFIED, TOPICAL
     Route: 061
     Dates: start: 20071001, end: 20071001

REACTIONS (5)
  - DERMATITIS CONTACT [None]
  - ECZEMA IMPETIGINOUS [None]
  - EYELID OEDEMA [None]
  - HYPERSENSITIVITY [None]
  - PERIORBITAL OEDEMA [None]
